FAERS Safety Report 10253575 (Version 1)
Quarter: 2014Q2

REPORT INFORMATION
  Report Type: Spontaneous
  Country: SE (occurrence: SE)
  Receive Date: 20140623
  Receipt Date: 20140623
  Transmission Date: 20141212
  Serious: Yes (Other)
  Sender: FDA-Public Use
  Company Number: CHPA2014SE008391

PATIENT
  Sex: Female

DRUGS (1)
  1. NICOTINELL GUM [Suspect]
     Dosage: UNK
     Route: 065

REACTIONS (1)
  - Drug dependence [Unknown]
